FAERS Safety Report 5944299-9 (Version None)
Quarter: 2008Q4

REPORT INFORMATION
  Report Type: 
  Country: None (occurrence: None)
  Receive Date: 20081105
  Receipt Date: 20081027
  Transmission Date: 20090506
  Serious: Yes (Other)
  Sender: FDA-Public Use
  Company Number: CHPA2008US18628

PATIENT
  Age: 65 Year
  Sex: Female

DRUGS (1)
  1. MAALOX ANTIACID/ANTIGAS MAX STR MULTI SYMPTOM (NCH)(MAGNESIUM HYDROXID [Suspect]
     Indication: ABDOMINAL DISCOMFORT
     Dosage: 2 TSP, TID,ORAL
     Route: 048
     Dates: start: 20081024, end: 20081026

REACTIONS (3)
  - CONCOMITANT DISEASE AGGRAVATED [None]
  - FAECES DISCOLOURED [None]
  - HAEMORRHOIDAL HAEMORRHAGE [None]
